FAERS Safety Report 6998883-4 (Version None)
Quarter: 2010Q3

REPORT INFORMATION
  Report Type: 
  Country: None (occurrence: None)
  Receive Date: 20100920
  Receipt Date: 20091123
  Transmission Date: 20110219
  Serious: No
  Sender: FDA-Public Use
  Company Number: US-ASTRAZENECA-2009SE28170

PATIENT
  Sex: Male

DRUGS (4)
  1. SEROQUEL [Suspect]
     Route: 048
     Dates: start: 20090901
  2. SEROQUEL [Suspect]
     Route: 048
     Dates: start: 20090901
  3. SEROQUEL [Suspect]
     Route: 048
     Dates: start: 20091101, end: 20091101
  4. SEROQUEL [Suspect]
     Route: 048
     Dates: start: 20091101, end: 20091101

REACTIONS (4)
  - DIZZINESS [None]
  - SLEEP DISORDER [None]
  - SOMNOLENCE [None]
  - WRONG DRUG ADMINISTERED [None]
